FAERS Safety Report 10989139 (Version 1)
Quarter: 2015Q2

REPORT INFORMATION
  Report Type: Spontaneous
  Country: US (occurrence: US)
  Receive Date: 20150406
  Receipt Date: 20150406
  Transmission Date: 20150821
  Serious: Yes (Other)
  Sender: FDA-Public Use
  Company Number: US-SUN PHARMACEUTICAL INDUSTRIES LTD-2015SUN00742

PATIENT
  Sex: Female

DRUGS (2)
  1. ZONISAMIDE CAPS 25MG [Suspect]
     Active Substance: ZONISAMIDE
     Dosage: RECENTLY LOWERED DOSAGE
     Route: 065
  2. ZONISAMIDE CAPS 25MG [Suspect]
     Active Substance: ZONISAMIDE
     Indication: SEIZURE
     Dosage: UNK
     Route: 065

REACTIONS (2)
  - Seizure [Unknown]
  - Pregnancy [Unknown]
